FAERS Safety Report 4328684-7 (Version None)
Quarter: 2004Q1

REPORT INFORMATION
  Report Type: 
  Country: None (occurrence: None)
  Receive Date: 20040329
  Receipt Date: 20040106
  Transmission Date: 20041129
  Serious: Yes (Hospitalization)
  Sender: FDA-Public Use
  Company Number: 04P-163-0246229-00

PATIENT
  Age: 65 Year
  Sex: Female
  Weight: 51.2565 kg

DRUGS (10)
  1. HUMIRA [Suspect]
     Indication: RHEUMATOID ARTHRITIS
     Dosage: 40 MG, 1 IN 2 WK, SUBCUTANEOUS
     Route: 058
     Dates: start: 20031218
  2. DARVOCET [Concomitant]
  3. PREDNISONE [Concomitant]
  4. PROVELLA-14 [Concomitant]
  5. RANITIDINE [Concomitant]
  6. ALPRAZOLAM [Concomitant]
  7. LISINOPRIL [Concomitant]
  8. FLUTICASON PROPIONATE [Concomitant]
  9. TRAMADOL HCL [Concomitant]
  10. PANTOPRAZOLE [Concomitant]

REACTIONS (2)
  - BLOOD POTASSIUM DECREASED [None]
  - CHEST PAIN [None]
